FAERS Safety Report 16064851 (Version 8)
Quarter: 2020Q3

REPORT INFORMATION
  Report Type: Report from Study
  Country: None (occurrence: US)
  Receive Date: 20190312
  Receipt Date: 20200820
  Transmission Date: 20201102
  Serious: Yes (Other)
  Sender: FDA-Public Use
  Company Number: US-ABBVIE-19K-163-2698768-00

PATIENT
  Age: 71 Year
  Sex: Male
  Weight: 73.55 kg

DRUGS (10)
  1. HUMIRA [Suspect]
     Active Substance: ADALIMUMAB
     Indication: PSORIASIS
     Route: 058
     Dates: start: 201903, end: 2019
  2. SUSTIVA [Concomitant]
     Active Substance: EFAVIRENZ
     Indication: HIV INFECTION
  3. ENALAPRIL [Concomitant]
     Active Substance: ENALAPRIL
     Indication: HYPERTENSION
  4. DESCOVY [Concomitant]
     Active Substance: EMTRICITABINE\TENOFOVIR ALAFENAMIDE FUMARATE
     Indication: HIV INFECTION
  5. HUMIRA [Suspect]
     Active Substance: ADALIMUMAB
     Route: 058
  6. ATENOLOL. [Concomitant]
     Active Substance: ATENOLOL
     Indication: HYPERTENSION
  7. AMLODIPINE [Concomitant]
     Active Substance: AMLODIPINE BESYLATE
     Indication: HYPERTENSION
  8. HUMIRA [Suspect]
     Active Substance: ADALIMUMAB
     Indication: PSORIATIC ARTHROPATHY
     Route: 058
     Dates: start: 20150504, end: 201901
  9. HUMIRA [Suspect]
     Active Substance: ADALIMUMAB
     Indication: PSORIASIS
     Route: 058
  10. OMEPRAZOLE. [Concomitant]
     Active Substance: OMEPRAZOLE
     Indication: GASTROOESOPHAGEAL REFLUX DISEASE

REACTIONS (29)
  - Neoplasm skin [Recovered/Resolved]
  - Eye pruritus [Unknown]
  - Foot deformity [Not Recovered/Not Resolved]
  - Hand deformity [Not Recovered/Not Resolved]
  - Erectile dysfunction [Not Recovered/Not Resolved]
  - Psoriasis [Not Recovered/Not Resolved]
  - Axillary mass [Recovered/Resolved]
  - Cataract [Unknown]
  - Mobility decreased [Recovered/Resolved]
  - Axillary mass [Not Recovered/Not Resolved]
  - HIV infection [Unknown]
  - Neoplasm [Recovering/Resolving]
  - Wound secretion [Recovered/Resolved]
  - Cataract [Recovered/Resolved]
  - Decreased appetite [Recovering/Resolving]
  - Hypoacusis [Unknown]
  - Cataract [Recovered/Resolved]
  - Weight increased [Unknown]
  - Skin discolouration [Unknown]
  - Pain [Unknown]
  - Rhinitis [Not Recovered/Not Resolved]
  - Subcutaneous abscess [Recovered/Resolved]
  - Nasopharyngitis [Not Recovered/Not Resolved]
  - Blood disorder [Unknown]
  - Psoriatic arthropathy [Unknown]
  - Infectious thyroiditis [Unknown]
  - Axillary mass [Recovered/Resolved]
  - Infection [Recovered/Resolved]
  - Axillary pain [Recovered/Resolved]

NARRATIVE: CASE EVENT DATE: 2017
